FAERS Safety Report 7572192-7 (Version None)
Quarter: 2011Q2

REPORT INFORMATION
  Report Type: 
  Country: None (occurrence: None)
  Receive Date: 20110624
  Receipt Date: 20110609
  Transmission Date: 20111010
  Serious: Yes (Hospitalization, Other)
  Sender: FDA-Public Use
  Company Number: PHHY2011ES50253

PATIENT
  Age: 82 Year
  Sex: Female

DRUGS (5)
  1. AEROFLAT [Concomitant]
     Dosage: UNK
  2. VALSARTAN [Suspect]
     Indication: HYPERTENSION
     Dosage: 80 MG, UNK
     Route: 048
     Dates: start: 20101215, end: 20110116
  3. AMILORIDE HCL AND HYDROCHLOROTHIAZIDE [Concomitant]
     Dosage: UNK
  4. OMEPRAZOLE [Concomitant]
     Dosage: UNK
  5. GEMFIBROZIL [Concomitant]
     Dosage: UNK

REACTIONS (6)
  - METABOLIC ACIDOSIS [None]
  - ATRIAL FIBRILLATION [None]
  - CREATININE RENAL CLEARANCE DECREASED [None]
  - RENAL FAILURE CHRONIC [None]
  - HYPOKALAEMIA [None]
  - HYPONATRAEMIA [None]
